FAERS Safety Report 10070014 (Version 1)
Quarter: 2014Q2

REPORT INFORMATION
  Report Type: Spontaneous
  Country: US (occurrence: None)
  Receive Date: 20140409
  Receipt Date: 20140409
  Transmission Date: 20141212
  Serious: Yes (Death, Hospitalization)
  Sender: FDA-Public Use
  Company Number: None

PATIENT
  Age: 14 Year
  Sex: Female
  Weight: 52.6 kg

DRUGS (1)
  1. PEG-L-ASPARAGINASE [Suspect]
     Dosage: 3825 UNIT
     Dates: end: 20140303

REACTIONS (5)
  - Cerebral haemorrhage [None]
  - Bacillus infection [None]
  - Coagulopathy [None]
  - Sepsis [None]
  - Extradural haematoma [None]
